FAERS Safety Report 21610905 (Version 2)
Quarter: 2022Q4

REPORT INFORMATION
  Report Type: Spontaneous
  Country: US (occurrence: US)
  Receive Date: 20221117
  Receipt Date: 20221122
  Transmission Date: 20230113
  Serious: No
  Sender: FDA-Public Use
  Company Number: US-PFIZER INC-PV202200099161

PATIENT

DRUGS (1)
  1. RAMIPRIL [Suspect]
     Active Substance: RAMIPRIL
     Indication: Hypertension
     Dosage: UNK

REACTIONS (4)
  - Malaise [Unknown]
  - Dizziness [Unknown]
  - Product quality issue [Unknown]
  - Poor quality product administered [Unknown]
